FAERS Safety Report 23685650 (Version 1)
Quarter: 2024Q1

REPORT INFORMATION
  Report Type: Spontaneous
  Country: US (occurrence: US)
  Receive Date: 20240329
  Receipt Date: 20240329
  Transmission Date: 20240410
  Serious: Yes (Hospitalization, Other)
  Sender: FDA-Public Use
  Company Number: US-MALLINCKRODT-MNK202401991

PATIENT
  Sex: Female

DRUGS (14)
  1. CORTICOTROPIN [Suspect]
     Active Substance: CORTICOTROPIN
     Indication: Sarcoidosis
     Route: 030
  2. ALBUTEROL SULFATE [Concomitant]
     Active Substance: ALBUTEROL SULFATE
     Dosage: 108 (90)
  3. METHOCARBAMOL [Concomitant]
     Active Substance: METHOCARBAMOL
  4. METOPROLOL SUCCINATE [Concomitant]
     Active Substance: METOPROLOL SUCCINATE
  5. ONDANSETRON [Concomitant]
     Active Substance: ONDANSETRON
  6. OXYBUTYNIN CHLORIDE [Concomitant]
     Active Substance: OXYBUTYNIN CHLORIDE
  7. TRAZODONE HCL [Concomitant]
     Active Substance: TRAZODONE HYDROCHLORIDE
  8. PREMARIN [Concomitant]
     Active Substance: ESTROGENS, CONJUGATED
     Dosage: 0.625 MG/GM
  9. PRAVASTATIN [Concomitant]
     Active Substance: PRAVASTATIN
  10. OMEPRAZOLE [Concomitant]
     Active Substance: OMEPRAZOLE
  11. NAPROXEN [Concomitant]
     Active Substance: NAPROXEN
  12. MONTELUKAST [Concomitant]
     Active Substance: MONTELUKAST SODIUM
  13. FOLIC ACID [Concomitant]
     Active Substance: FOLIC ACID
     Dosage: 800 MCG
  14. FERROUS SULFATE\FOLIC ACID [Concomitant]
     Active Substance: FERROUS SULFATE\FOLIC ACID
     Dosage: UNKNOWN

REACTIONS (3)
  - Fall [Unknown]
  - Hand fracture [Not Recovered/Not Resolved]
  - Photophobia [Not Recovered/Not Resolved]
